FAERS Safety Report 16081385 (Version 1)
Quarter: 2019Q1

REPORT INFORMATION
  Report Type: Spontaneous
  Country: CA (occurrence: CA)
  Receive Date: 20190316
  Receipt Date: 20190316
  Transmission Date: 20190418
  Serious: Yes (Hospitalization)
  Sender: FDA-Public Use
  Company Number: CA-AUROBINDO-AUR-APL-2019-012881

PATIENT

DRUGS (4)
  1. TOBRAMYCIN. [Suspect]
     Active Substance: TOBRAMYCIN
     Indication: MENINGITIS
     Dosage: 9 MILLIGRAM, TWO TIMES A DAY
     Route: 048
  2. CEFOTAXIME [Suspect]
     Active Substance: CEFOTAXIME SODIUM
     Indication: MENINGITIS
     Dosage: 265 MILLIGRAM, FOUR TIMES/DAY
     Route: 064
  3. ACYCLOVIR. [Concomitant]
     Active Substance: ACYCLOVIR
     Indication: PRODUCT USED FOR UNKNOWN INDICATION
     Dosage: UNK
     Route: 065
  4. AMPICILLIN [Suspect]
     Active Substance: AMPICILLIN
     Indication: MENINGITIS
     Dosage: 265 MILLIGRAM, FOUR TIMES/DAY
     Route: 064

REACTIONS (3)
  - Pain [Unknown]
  - Candida infection [Unknown]
  - Erythema annulare [Unknown]
